FAERS Safety Report 7245969-5 (Version None)
Quarter: 2011Q1

REPORT INFORMATION
  Report Type: 
  Country: None (occurrence: None)
  Receive Date: 20110126
  Receipt Date: 20110119
  Transmission Date: 20110831
  Serious: Yes (Hospitalization)
  Sender: FDA-Public Use
  Company Number: CA-MEDIMMUNE-MEDI-0012320

PATIENT
  Sex: Female
  Weight: 9.3 kg

DRUGS (5)
  1. SYNAGIS [Suspect]
     Indication: HEART DISEASE CONGENITAL
     Route: 030
  2. DIGOXIN [Concomitant]
  3. RANITIDINE [Concomitant]
  4. FUROSEMIDE [Concomitant]
     Route: 048
  5. BOSENTAN [Concomitant]

REACTIONS (1)
  - PNEUMONIA [None]
